FAERS Safety Report 13424805 (Version 2)
Quarter: 2017Q2

REPORT INFORMATION
  Report Type: Spontaneous
  Country: US (occurrence: US)
  Receive Date: 20170410
  Receipt Date: 20170413
  Transmission Date: 20170830
  Serious: Yes (Death)
  Sender: FDA-Public Use
  Company Number: US-ACTELION-A-US2017-152321

PATIENT
  Age: 54 Year
  Sex: Male
  Weight: 68.93 kg

DRUGS (3)
  1. VELETRI [Suspect]
     Active Substance: EPOPROSTENOL
     Indication: PULMONARY ARTERIAL HYPERTENSION
     Dosage: 33 NG/KG, PER MIN
     Route: 042
     Dates: end: 20170405
  2. REVATIO [Concomitant]
     Active Substance: SILDENAFIL CITRATE
  3. ELIQUIS [Concomitant]
     Active Substance: APIXABAN

REACTIONS (3)
  - Pulmonary arterial hypertension [Fatal]
  - Disease progression [Fatal]
  - Lung disorder [Fatal]
